FAERS Safety Report 5280356-0 (Version None)
Quarter: 2007Q1

REPORT INFORMATION
  Report Type: 
  Country: None (occurrence: None)
  Receive Date: 20070326
  Receipt Date: 20070326
  Transmission Date: 20070707
  Serious: Yes (Hospitalization)
  Sender: FDA-Public Use
  Company Number: None

PATIENT
  Sex: Male
  Weight: 55 kg

DRUGS (7)
  1. SULFADIAZINE 500 MG UNKNOWN [Suspect]
     Indication: TOXOPLASMOSIS
     Dosage: 1000 MG QID PO
     Route: 048
     Dates: start: 20061215, end: 20070320
  2. TRUVADA [Suspect]
     Indication: HIV INFECTION
     Dosage: 1 TABLET DAILY PO
     Route: 048
     Dates: start: 20061108, end: 20070320
  3. PYRIMETHAMINE TAB [Concomitant]
  4. FOLINIC ACID [Concomitant]
  5. VICODIN [Concomitant]
  6. GUIAFENESIN/CODEINE SYRUP [Concomitant]
  7. SEPTRA DS [Concomitant]

REACTIONS (5)
  - BLOOD CREATININE INCREASED [None]
  - CRYSTAL URINE PRESENT [None]
  - MUSCULOSKELETAL CHEST PAIN [None]
  - NAUSEA [None]
  - VOMITING [None]
